FAERS Safety Report 7325121-5 (Version None)
Quarter: 2011Q1

REPORT INFORMATION
  Report Type: 
  Country: None (occurrence: None)
  Receive Date: 20110302
  Receipt Date: 20110218
  Transmission Date: 20110831
  Serious: No
  Sender: FDA-Public Use
  Company Number: US-BIOGENIDEC-2011BI006747

PATIENT
  Sex: Male

DRUGS (4)
  1. AVONEX [Suspect]
     Indication: MULTIPLE SCLEROSIS
     Route: 030
     Dates: start: 20030101
  2. GLUCOSAMINE SULFATE [Concomitant]
  3. AVONEX [Suspect]
     Route: 030
     Dates: start: 20011226
  4. BIOFREEZE [Concomitant]

REACTIONS (8)
  - HYPOAESTHESIA [None]
  - FALL [None]
  - TEMPERATURE INTOLERANCE [None]
  - MEMORY IMPAIRMENT [None]
  - PAIN IN EXTREMITY [None]
  - ARTHRITIS [None]
  - INFLUENZA LIKE ILLNESS [None]
  - INSOMNIA [None]
